FAERS Safety Report 6412810-X (Version None)
Quarter: 2009Q4

REPORT INFORMATION
  Report Type: 
  Country: None (occurrence: None)
  Receive Date: 20091023
  Receipt Date: 20091012
  Transmission Date: 20100525
  Serious: Yes (Life-Threatening, Hospitalization, Disabling, Other)
  Sender: FDA-Public Use
  Company Number: AT-ELI_LILLY_AND_COMPANY-AT200910000110

PATIENT
  Age: 24 Year
  Sex: Female

DRUGS (5)
  1. ZYPREXA [Suspect]
     Indication: SCHIZOPHRENIA
     Dosage: 10 MG, 2/D
     Route: 065
     Dates: start: 20090603, end: 20090605
  2. ZYPREXA [Suspect]
     Dosage: 10 MG, 2/D
     Route: 065
     Dates: start: 20090701, end: 20090715
  3. TEMESTA [Concomitant]
     Indication: RESTLESSNESS
     Dosage: MAXIMAL DOSAGE OF 2.5MG TABLETS 1/2-1/2-1/2-1
     Route: 065
     Dates: start: 20090430
  4. TEMESTA [Concomitant]
     Dosage: 1 MG, OTHER (1/2-0-0-1/2)
     Route: 065
     Dates: start: 20090701, end: 20090715
  5. ORAL CONTRACEPTIVE NOS [Concomitant]
     Dosage: UNK, UNKNOWN

REACTIONS (1)
  - PULMONARY EMBOLISM [None]
